FAERS Safety Report 7138414-1 (Version None)
Quarter: 2010Q4

REPORT INFORMATION
  Report Type: 
  Country: None (occurrence: None)
  Receive Date: 20101206
  Receipt Date: 20101130
  Transmission Date: 20110411
  Serious: Yes (Other)
  Sender: FDA-Public Use
  Company Number: US-ELI_LILLY_AND_COMPANY-US201009004140

PATIENT
  Sex: Male
  Weight: 81.361 kg

DRUGS (20)
  1. PEMETREXED [Suspect]
     Indication: NON-SMALL CELL LUNG CANCER STAGE IV
     Dosage: 500 MG/M2, ON DAY 1 EVERY 21 DAYS
     Route: 042
     Dates: start: 20100324, end: 20100609
  2. PEMETREXED [Suspect]
     Dosage: 281.3 MG/M2, ON DAY 1 EVERY 21 DAYS
     Route: 042
     Dates: start: 20100714
  3. CARBOPLATIN [Suspect]
     Indication: NON-SMALL CELL LUNG CANCER STAGE IV
     Dosage: 6 AUC, ON DAY 1 EVERY 21 DAYS
     Route: 042
     Dates: start: 20100324, end: 20100609
  4. BEVACIZUMAB [Suspect]
     Indication: NON-SMALL CELL LUNG CANCER STAGE IV
     Dosage: 15 MG/KG, ON DAY ONE EVERY 21 DAYS
     Route: 042
     Dates: start: 20100324, end: 20100609
  5. BEVACIZUMAB [Suspect]
     Dosage: 15 MG/M2, OTHER (DAY ONE EVERY 21 DAYS)
     Route: 042
     Dates: start: 20100714, end: 20100804
  6. FOLIC ACID [Concomitant]
     Indication: PREMEDICATION
     Dosage: UNK, UNK
     Dates: start: 20100224
  7. CYANOCOBALAMIN [Concomitant]
     Indication: PREMEDICATION
     Dosage: UNK, UNK
     Dates: start: 20100317
  8. CELEXA [Concomitant]
     Indication: DEPRESSION
     Dosage: UNK, UNK
     Dates: start: 20100422
  9. LORTAB [Concomitant]
     Indication: PAIN
     Dates: start: 20100331, end: 20100825
  10. EMLA [Concomitant]
     Dates: start: 20100317
  11. COUMADIN [Concomitant]
     Indication: PULMONARY EMBOLISM
     Dosage: 5 MG, DAILY (1/D)
     Route: 048
     Dates: start: 20100317
  12. COUMADIN [Concomitant]
     Dosage: 2.5 MG, DAILY (1/D)
     Route: 048
     Dates: start: 20100825
  13. ALBUTEROL [Concomitant]
     Indication: DYSPNOEA
     Dates: start: 20100424
  14. COMBIVENT [Concomitant]
     Indication: DYSPNOEA
     Dates: start: 20100331
  15. COMPAZINE [Concomitant]
     Indication: NAUSEA
     Dates: start: 20100324
  16. DECADRON [Concomitant]
     Indication: PREMEDICATION
     Dates: start: 20100324
  17. FLOMAX [Concomitant]
     Indication: ISCHAEMIA
     Dates: start: 20100513
  18. MAGNESIUM OXIDE [Concomitant]
     Indication: HYPOMAGNESAEMIA
     Dates: start: 20100609
  19. MECLIZINE [Concomitant]
     Indication: DIZZINESS
     Dates: start: 20100609
  20. REMERON [Concomitant]
     Indication: DECREASED APPETITE
     Dates: start: 20100324

REACTIONS (1)
  - PULMONARY EMBOLISM [None]
